FAERS Safety Report 5008131-2 (Version None)
Quarter: 2006Q2

REPORT INFORMATION
  Report Type: 
  Country: None (occurrence: None)
  Receive Date: 20060517
  Receipt Date: 20060510
  Transmission Date: 20061013
  Serious: Yes (Other)
  Sender: FDA-Public Use
  Company Number: 2006059848

PATIENT
  Age: 65 Year
  Sex: Female
  Weight: 60 kg

DRUGS (4)
  1. DILANTIN [Suspect]
     Indication: ILL-DEFINED DISORDER
     Dosage: 600 MG (600 MG, 1 IN 1 D), ORAL
     Route: 048
     Dates: start: 19811001, end: 19830214
  2. LEVOTHYROXINE SODIUM [Concomitant]
  3. TIMOLOL MALEATE [Concomitant]
  4. APRINOX       (BENDROFLUMETHIAZIDE) [Concomitant]

REACTIONS (4)
  - ANOREXIA [None]
  - GLOSSITIS [None]
  - HEPATIC FUNCTION ABNORMAL [None]
  - SENSORY DISTURBANCE [None]
